FAERS Safety Report 12618781 (Version 1)
Quarter: 2016Q3

REPORT INFORMATION
  Report Type: Spontaneous
  Country: US (occurrence: US)
  Receive Date: 20160803
  Receipt Date: 20160803
  Transmission Date: 20161109
  Serious: No
  Sender: FDA-Public Use
  Company Number: US-BEH-2016071722

PATIENT
  Sex: Male
  Weight: 86.17 kg

DRUGS (13)
  1. HEPARIN [Concomitant]
     Active Substance: HEPARIN SODIUM
  2. LMX                                /00033401/ [Concomitant]
  3. EPIPEN [Concomitant]
     Active Substance: EPINEPHRINE
  4. PROAIR HFA [Concomitant]
     Active Substance: ALBUTEROL SULFATE
  5. ADVAIR HFA [Concomitant]
     Active Substance: FLUTICASONE PROPIONATE\SALMETEROL XINAFOATE
  6. ALBUTEROL                          /00139501/ [Concomitant]
     Active Substance: ALBUTEROL
  7. LISINOPRIL. [Concomitant]
     Active Substance: LISINOPRIL
  8. LEXAPRO [Concomitant]
     Active Substance: ESCITALOPRAM OXALATE
  9. ZEMAIRA [Suspect]
     Active Substance: .ALPHA.1-PROTEINASE INHIBITOR HUMAN
     Indication: ALPHA-1 ANTI-TRYPSIN DEFICIENCY
     Dosage: 60 MG/KG, UNK
     Route: 042
     Dates: start: 20130823
  10. DIPHENHYDRAMINE. [Concomitant]
     Active Substance: DIPHENHYDRAMINE
  11. SODIUM CHLORIDE. [Concomitant]
     Active Substance: SODIUM CHLORIDE
  12. KLONOPIN [Concomitant]
     Active Substance: CLONAZEPAM
  13. SPIRIVA [Concomitant]
     Active Substance: TIOTROPIUM BROMIDE MONOHYDRATE

REACTIONS (1)
  - Infusion site swelling [Unknown]
